FAERS Safety Report 8013734-7 (Version None)
Quarter: 2011Q4

REPORT INFORMATION
  Report Type: 
  Country: None (occurrence: None)
  Receive Date: 20111229
  Receipt Date: 20111216
  Transmission Date: 20120403
  Serious: Yes (Hospitalization, Other)
  Sender: FDA-Public Use
  Company Number: DE-ELI_LILLY_AND_COMPANY-DE201112004410

PATIENT
  Sex: Female

DRUGS (4)
  1. ASPIRIN [Concomitant]
  2. FORTEO [Suspect]
     Indication: OSTEOPOROSIS
     Dosage: UNK UNK, QD
     Route: 058
     Dates: start: 20100602
  3. VITAMIN D [Concomitant]
  4. CALCIUM ACETATE [Concomitant]

REACTIONS (4)
  - FALL [None]
  - INFECTION [None]
  - SURGERY [None]
  - FEMUR FRACTURE [None]
